FAERS Safety Report 6355758-1 (Version None)
Quarter: 2009Q3

REPORT INFORMATION
  Report Type: 
  Country: None (occurrence: None)
  Receive Date: 20090911
  Receipt Date: 20090911
  Transmission Date: 20100115
  Serious: Yes (Other)
  Sender: FDA-Public Use
  Company Number: None

PATIENT
  Age: 54 Year
  Sex: Female
  Weight: 49.8957 kg

DRUGS (1)
  1. RECLAST [Suspect]
     Indication: OSTEOPOROSIS
     Dosage: 5MG YEARLY IV
     Route: 042
     Dates: start: 20090526

REACTIONS (4)
  - ARTHRALGIA [None]
  - HEADACHE [None]
  - MYALGIA [None]
  - UPPER RESPIRATORY TRACT INFECTION [None]
